FAERS Safety Report 6877323-X (Version None)
Quarter: 2010Q3

REPORT INFORMATION
  Report Type: 
  Country: None (occurrence: None)
  Receive Date: 20100727
  Receipt Date: 20090903
  Transmission Date: 20110219
  Serious: No
  Sender: FDA-Public Use
  Company Number: US-ABBOTT-09P-163-0595668-00

PATIENT
  Sex: Female
  Weight: 104.42 kg

DRUGS (6)
  1. SYNTHROID [Suspect]
     Indication: HYPOTHYROIDISM
     Route: 048
     Dates: start: 20020101
  2. LASIX [Concomitant]
     Indication: FLUID RETENTION
  3. BONIVA [Concomitant]
     Indication: OSTEOPOROSIS
     Dates: start: 20080101
  4. ATENOLOL [Concomitant]
     Indication: CARDIAC DISORDER
  5. LIPITOR [Concomitant]
     Indication: BLOOD CHOLESTEROL INCREASED
  6. ASPIRIN [Concomitant]
     Indication: CARDIAC DISORDER
     Dates: start: 20020101

REACTIONS (3)
  - OEDEMA [None]
  - OSTEOPOROSIS [None]
  - WEIGHT INCREASED [None]
